FAERS Safety Report 8525473-4 (Version None)
Quarter: 2012Q3

REPORT INFORMATION
  Report Type: 
  Country: None (occurrence: None)
  Receive Date: 20120720
  Receipt Date: 20120710
  Transmission Date: 20120928
  Serious: No
  Sender: FDA-Public Use
  Company Number: US-ASTRAZENECA-2012SE47649

PATIENT
  Age: 59 Year
  Sex: Female

DRUGS (3)
  1. SEROQUEL [Suspect]
     Route: 048
  2. NEXIUM [Concomitant]
  3. SEROQUEL [Suspect]
     Dosage: HALF TABLET
     Route: 048

REACTIONS (2)
  - INTENTIONAL DRUG MISUSE [None]
  - SOMNOLENCE [None]
